FAERS Safety Report 8523947-3 (Version None)
Quarter: 2012Q3

REPORT INFORMATION
  Report Type: 
  Country: None (occurrence: None)
  Receive Date: 20120720
  Receipt Date: 20120712
  Transmission Date: 20120928
  Serious: Yes (Hospitalization)
  Sender: FDA-Public Use
  Company Number: US-BAYER-2012-011379

PATIENT
  Age: 38 Year
  Sex: Female
  Weight: 55.329 kg

DRUGS (5)
  1. ZYRTEC [Concomitant]
     Indication: SEASONAL ALLERGY
  2. TYLENOL [Concomitant]
     Indication: HEADACHE
  3. YAZ [Suspect]
     Indication: PREMENSTRUAL SYNDROME
  4. YAZ [Suspect]
     Indication: CONTRACEPTION
     Dosage: UNK
     Dates: start: 20081008, end: 20090304
  5. DIFLUCAN [Concomitant]
     Indication: VULVITIS

REACTIONS (12)
  - INJURY [None]
  - ISCHAEMIC STROKE [None]
  - PAIN [None]
  - EMOTIONAL DISTRESS [None]
  - AMNESIA [None]
  - ANXIETY [None]
  - GENERAL PHYSICAL HEALTH DETERIORATION [None]
  - SPEECH DISORDER [None]
  - DYSPHEMIA [None]
  - APHASIA [None]
  - DISTURBANCE IN ATTENTION [None]
  - MEMORY IMPAIRMENT [None]
